FAERS Safety Report 15906155 (Version 5)
Quarter: 2019Q4

REPORT INFORMATION
  Report Type: Spontaneous
  Country: US (occurrence: US)
  Receive Date: 20190204
  Receipt Date: 20191118
  Transmission Date: 20200122
  Serious: Yes (Death, Other)
  Sender: FDA-Public Use
  Company Number: US-ASTRAZENECA-2018SF26300

PATIENT
  Age: 797 Month
  Sex: Male
  Weight: 112 kg

DRUGS (18)
  1. ALLERGA [Concomitant]
  2. ROPINIROLE. [Concomitant]
     Active Substance: ROPINIROLE
  3. COMBIVENT [Concomitant]
     Active Substance: ALBUTEROL SULFATE\IPRATROPIUM BROMIDE
  4. MINOXIDIL. [Concomitant]
     Active Substance: MINOXIDIL
  5. AMBIEN [Concomitant]
     Active Substance: ZOLPIDEM TARTRATE
  6. VITAMIN E [Concomitant]
     Active Substance: .ALPHA.-TOCOPHEROL
  7. PRILOSEC OTC [Suspect]
     Active Substance: OMEPRAZOLE MAGNESIUM
     Indication: GASTROOESOPHAGEAL REFLUX DISEASE
     Route: 048
     Dates: start: 200601, end: 200808
  8. INSULIN [Concomitant]
     Active Substance: INSULIN NOS
  9. COREG [Concomitant]
     Active Substance: CARVEDILOL
  10. NORCO [Concomitant]
     Active Substance: ACETAMINOPHEN\HYDROCODONE BITARTRATE
  11. NORVASC [Concomitant]
     Active Substance: AMLODIPINE BESYLATE
  12. ASPIRIN. [Concomitant]
     Active Substance: ASPIRIN
  13. VITAMIN D [Concomitant]
     Active Substance: VITAMIN D NOS
  14. SINGULAIR [Concomitant]
     Active Substance: MONTELUKAST SODIUM
  15. FLONASC [Concomitant]
  16. FOLIC ACID. [Concomitant]
     Active Substance: FOLIC ACID
  17. FLOMAX [Concomitant]
     Active Substance: TAMSULOSIN HYDROCHLORIDE
  18. ADVAIR HFA [Concomitant]
     Active Substance: FLUTICASONE PROPIONATE\SALMETEROL XINAFOATE

REACTIONS (4)
  - Renal failure [Unknown]
  - Renal injury [Unknown]
  - Chronic kidney disease [Unknown]
  - End stage renal disease [Not Recovered/Not Resolved]

NARRATIVE: CASE EVENT DATE: 201210
